FAERS Safety Report 23795115 (Version 5)
Quarter: 2025Q1

REPORT INFORMATION
  Report Type: Spontaneous
  Country: US (occurrence: US)
  Receive Date: 20240429
  Receipt Date: 20250129
  Transmission Date: 20250409
  Serious: Yes (Hospitalization, Other)
  Sender: SANDOZ
  Company Number: US-SANDOZ-SDZ2024US042542

PATIENT
  Age: 26 Year
  Sex: Female
  Weight: 86 kg

DRUGS (28)
  1. ALPRAZOLAM [Suspect]
     Active Substance: ALPRAZOLAM
     Indication: Anxiety
     Route: 048
     Dates: start: 20240314
  2. AMITRIPTYLINE [Suspect]
     Active Substance: AMITRIPTYLINE
     Indication: Anxiety
     Route: 065
     Dates: start: 20240307
  3. IMURAN [Suspect]
     Active Substance: AZATHIOPRINE
     Indication: Immunosuppression
     Route: 048
     Dates: start: 20230816
  4. MYCOPHENOLATE MOFETIL [Suspect]
     Active Substance: MYCOPHENOLATE MOFETIL
     Dosage: 180 MG, BID
     Route: 048
     Dates: start: 20230629, end: 20230816
  5. MYCOPHENOLATE MOFETIL [Suspect]
     Active Substance: MYCOPHENOLATE MOFETIL
     Dosage: 360 MG, QD
     Route: 048
     Dates: start: 20230629, end: 20230815
  6. MYCOPHENOLATE MOFETIL [Suspect]
     Active Substance: MYCOPHENOLATE MOFETIL
     Indication: Product used for unknown indication
     Route: 065
     Dates: end: 20230814
  7. MAGNESIUM [Suspect]
     Active Substance: MAGNESIUM
     Indication: Hypomagnesaemia
     Route: 065
     Dates: start: 202404
  8. PREDNISONE [Suspect]
     Active Substance: PREDNISONE
     Indication: Immunosuppressant drug therapy
     Dosage: 5 UG, QD
     Route: 048
     Dates: start: 20210425
  9. PROGRAF [Suspect]
     Active Substance: TACROLIMUS
     Indication: Immunosuppressant drug therapy
     Route: 065
     Dates: start: 20210425
  10. ROCALTROL [Suspect]
     Active Substance: CALCITRIOL
     Indication: Mineral supplementation
     Route: 065
     Dates: start: 2021
  11. VITAMIN D [Suspect]
     Active Substance: VITAMIN D NOS
     Indication: Vitamin D deficiency
     Dosage: 2000 IU, QD
     Route: 065
  12. ALPRAZOLAM [Concomitant]
     Active Substance: ALPRAZOLAM
     Indication: Anxiety
     Dosage: UNK UNK, BID (0.25 BID)
     Route: 048
     Dates: start: 20240314
  13. AMITRIPTYLINE [Concomitant]
     Active Substance: AMITRIPTYLINE
     Indication: Anxiety
     Route: 065
     Dates: start: 20240307
  14. AMLODIPINE [Concomitant]
     Active Substance: AMLODIPINE BESYLATE
     Dosage: 10 MG, QD
     Route: 065
     Dates: start: 20230413
  15. AMLODIPINE [Concomitant]
     Active Substance: AMLODIPINE BESYLATE
     Indication: Hypertension
     Dosage: 10 UG, QD (IF BP 140/90)
     Route: 065
     Dates: start: 20240405
  16. ATARAX [Concomitant]
     Active Substance: HYDROXYZINE HYDROCHLORIDE
     Indication: Anxiety
     Dosage: 25 MG, QD (PRN)
     Route: 065
     Dates: start: 20230725
  17. AZATHIOPRINE [Concomitant]
     Active Substance: AZATHIOPRINE
     Indication: Immunosuppression
     Route: 065
     Dates: start: 20230816
  18. KEFLEX [Concomitant]
     Active Substance: CEPHALEXIN
     Indication: Urinary tract infection
     Dosage: 500 MG, QD
     Route: 065
     Dates: start: 20231003
  19. LEXAPRO [Concomitant]
     Active Substance: ESCITALOPRAM OXALATE
     Indication: Anxiety
     Dosage: 10 MG, QD
     Route: 065
     Dates: start: 20230606, end: 20230725
  20. LEXAPRO [Concomitant]
     Active Substance: ESCITALOPRAM OXALATE
     Indication: Depression
  21. MAGNESIUM [Concomitant]
     Active Substance: MAGNESIUM
     Indication: Hypomagnesaemia
     Dosage: 2.5 DOSAGE FORM, QD
     Route: 065
     Dates: start: 202404
  22. PROGRAF [Concomitant]
     Active Substance: TACROLIMUS
     Indication: Immune disorder prophylaxis
     Dosage: 1 MG, QD
     Route: 065
     Dates: start: 20210425
  23. PROGRAF [Concomitant]
     Active Substance: TACROLIMUS
     Indication: Renal transplant
     Dosage: UNK, BID (4 MG IN AM AND 5 MG IN PM)
     Route: 065
     Dates: start: 202104
  24. PROZAC [Concomitant]
     Active Substance: FLUOXETINE HYDROCHLORIDE
     Indication: Anxiety
     Dosage: 20 MG, QD
     Route: 065
     Dates: start: 2022
  25. ROCALTROL [Concomitant]
     Active Substance: CALCITRIOL
     Indication: Renal transplant
     Dosage: 0.5 UG, Q3W
     Route: 065
     Dates: start: 2021
  26. ROCALTROL [Concomitant]
     Active Substance: CALCITRIOL
     Indication: Mineral supplementation
     Route: 065
     Dates: start: 20230425
  27. WELLBUTRIN [Concomitant]
     Active Substance: BUPROPION HYDROCHLORIDE
     Indication: Anxiety
     Dosage: 150 MG, QD
     Route: 065
     Dates: start: 20230629, end: 20230725
  28. WELLBUTRIN [Concomitant]
     Active Substance: BUPROPION HYDROCHLORIDE
     Dosage: 150 MG, QD
     Route: 065
     Dates: start: 2021

REACTIONS (6)
  - Hypertension [Unknown]
  - Maternal exposure during pregnancy [Unknown]
  - Superimposed pre-eclampsia [Unknown]
  - Clavicle fracture [Unknown]
  - Delivery [Unknown]
  - Injury [Unknown]

NARRATIVE: CASE EVENT DATE: 20240402
